FAERS Safety Report 8695021 (Version 3)
Quarter: 2012Q4

REPORT INFORMATION
  Report Type: 
  Country: US (occurrence: US)
  Receive Date: 20120731
  Receipt Date: 20120914
  Transmission Date: 20130627
  Serious: No
  Sender: FDA-Public Use
  Company Number: US-009507513-1207USA009862

PATIENT

DRUGS (1)
  1. PEGINTRON [Suspect]
     Indication: HEPATITIS C
     Dosage: 80 microgram/0.5ml, qw
     Route: 058
     Dates: start: 20120124

REACTIONS (4)
  - Localised infection [Not Recovered/Not Resolved]
  - Jaw fracture [Unknown]
  - Fall [Unknown]
  - Alopecia [Unknown]
